FAERS Safety Report 4884890-4 (Version None)
Quarter: 2006Q1

REPORT INFORMATION
  Report Type: 
  Country: None (occurrence: None)
  Receive Date: 20060117
  Receipt Date: 20060102
  Transmission Date: 20060701
  Serious: Yes (Death)
  Sender: FDA-Public Use
  Company Number: AZAUS200500400

PATIENT
  Age: 80 Year
  Sex: Male
  Weight: 58.9676 kg

DRUGS (9)
  1. VIDAZA [Suspect]
     Indication: MYELODYSPLASTIC SYNDROME
     Dosage: 60 MG(M2 (100 MG), SUBCUTANEOUS
     Route: 058
     Dates: start: 20051010, end: 20051016
  2. ADVAIR DISKUS 100/50 [Concomitant]
  3. LASIX [Concomitant]
  4. NORVASC [Concomitant]
  5. PLAVIX [Concomitant]
  6. PROTONIX [Concomitant]
  7. PREDNISONE [Concomitant]
  8. TOPROL-XL [Concomitant]
  9. PRAVACHOL [Concomitant]

REACTIONS (7)
  - ABDOMINAL PAIN [None]
  - CARDIO-RESPIRATORY ARREST [None]
  - DIARRHOEA [None]
  - HAEMOGLOBIN DECREASED [None]
  - JAUNDICE [None]
  - NEUTROPENIA [None]
  - PYREXIA [None]
